FAERS Safety Report 6844613-6 (Version None)
Quarter: 2010Q3

REPORT INFORMATION
  Report Type: 
  Country: None (occurrence: None)
  Receive Date: 20100715
  Receipt Date: 20100706
  Transmission Date: 20110219
  Serious: Yes (Other)
  Sender: FDA-Public Use
  Company Number: US-PERRIGO-10US011059

PATIENT
  Sex: Female
  Weight: 14.966 kg

DRUGS (4)
  1. CETIRIZINE 1 MG/ML 974 [Suspect]
     Indication: HYPERSENSITIVITY
     Dosage: 2.5 MG, QD
     Route: 048
     Dates: start: 20100531, end: 20100604
  2. AXID [Concomitant]
     Indication: PRODUCT USED FOR UNKNOWN INDICATION
     Dosage: 1.1 ML, TID
     Route: 048
     Dates: start: 20070501
  3. OMEPRAZOLE [Concomitant]
     Indication: PRODUCT USED FOR UNKNOWN INDICATION
     Dosage: 5 ML, QD
     Route: 048
     Dates: start: 20080601
  4. LEUCOVORIN CALCIUM [Concomitant]
     Indication: PRODUCT USED FOR UNKNOWN INDICATION
     Dosage: UNK
     Route: 048
     Dates: start: 20090601

REACTIONS (4)
  - APNOEA [None]
  - ATAXIA [None]
  - COGNITIVE DISORDER [None]
  - URINARY INCONTINENCE [None]
